FAERS Safety Report 14380256 (Version 2)
Quarter: 2018Q1

REPORT INFORMATION
  Report Type: Report from Study
  Country: US (occurrence: US)
  Receive Date: 20180112
  Receipt Date: 20180226
  Transmission Date: 20180509
  Serious: Yes (Hospitalization)
  Sender: FDA-Public Use
  Company Number: US-PFIZER INC-2018012072

PATIENT
  Age: 13 Year
  Sex: Female
  Weight: 72.7 kg

DRUGS (19)
  1. PEGASPARGASE [Suspect]
     Active Substance: PEGASPARGASE
     Indication: ACUTE LYMPHOCYTIC LEUKAEMIA
     Dosage: 4600 IU, ONCE
     Route: 042
     Dates: start: 20170928, end: 20170928
  2. LANTUS [Concomitant]
     Active Substance: INSULIN GLARGINE
     Dosage: UNK
     Dates: start: 20170918
  3. MIRALAX [Concomitant]
     Active Substance: POLYETHYLENE GLYCOL 3350
     Dosage: UNK
     Dates: start: 20170202
  4. RUXOLITINIB [Suspect]
     Active Substance: RUXOLITINIB
     Indication: ACUTE LYMPHOCYTIC LEUKAEMIA
     Dosage: 70 MG, BID
     Route: 048
     Dates: start: 20170927, end: 20171020
  5. ONDANSETRON [Concomitant]
     Active Substance: ONDANSETRON
     Dosage: UNK
     Dates: start: 20170202
  6. BENADRYL [Concomitant]
     Active Substance: DIPHENHYDRAMINE HYDROCHLORIDE
     Dosage: UNK
     Dates: start: 20170228
  7. SCOPOLAMINE /00008701/ [Concomitant]
     Active Substance: SCOPOLAMINE
     Dosage: PATCH
     Dates: start: 20170228
  8. SENNA /00142201/ [Concomitant]
     Active Substance: SENNA LEAF
     Dosage: UNK
     Dates: start: 20170802
  9. METHOTREXATE SODIUM. [Suspect]
     Active Substance: METHOTREXATE SODIUM
     Indication: ACUTE LYMPHOCYTIC LEUKAEMIA
     Dosage: 15 MG, ONCE
     Route: 037
     Dates: start: 20170927, end: 20170927
  10. PROVERA [Concomitant]
     Active Substance: MEDROXYPROGESTERONE ACETATE
     Dosage: UNK
     Dates: start: 20170906
  11. REGLAN [Concomitant]
     Active Substance: METOCLOPRAMIDE HYDROCHLORIDE
     Dosage: UNK
     Dates: start: 20170228
  12. EMLA [Concomitant]
     Active Substance: LIDOCAINE\PRILOCAINE
     Dosage: UNK
     Dates: start: 20170202
  13. METHOTREXATE SODIUM. [Suspect]
     Active Substance: METHOTREXATE SODIUM
     Dosage: 275 MG, ONCE
     Route: 042
     Dates: start: 20171006, end: 20171006
  14. VINCRISTINE SULFATE. [Suspect]
     Active Substance: VINCRISTINE SULFATE
     Indication: ACUTE LYMPHOCYTIC LEUKAEMIA
     Dosage: 2 MG, ONCE
     Route: 042
     Dates: start: 20171006
  15. MAGNESIUM CARBONATE [Concomitant]
     Active Substance: MAGNESIUM CARBONATE
     Indication: HYPOMAGNESAEMIA
     Dosage: 162 MG, BID
     Route: 048
     Dates: start: 20170614
  16. BACTRIM [Concomitant]
     Active Substance: SULFAMETHOXAZOLE\TRIMETHOPRIM
     Dosage: UNK
     Dates: start: 20170130
  17. LISPRO INSULIN [Concomitant]
     Active Substance: INSULIN LISPRO
     Dosage: UNK
     Dates: start: 20171011
  18. ROXICODONE [Concomitant]
     Active Substance: OXYCODONE HYDROCHLORIDE
     Dosage: UNK
     Dates: start: 20170202
  19. ACYCLOVIR /00587301/ [Concomitant]
     Active Substance: ACYCLOVIR
     Dosage: UNK
     Dates: start: 20170527

REACTIONS (1)
  - Colitis [Recovered/Resolved]

NARRATIVE: CASE EVENT DATE: 20171011
